FAERS Safety Report 4362988-7 (Version None)
Quarter: 2004Q2

REPORT INFORMATION
  Report Type: 
  Country: None (occurrence: None)
  Receive Date: 20040518
  Receipt Date: 20040505
  Transmission Date: 20050107
  Serious: Yes (Hospitalization)
  Sender: FDA-Public Use
  Company Number: 04P-056-0259794-00

PATIENT
  Age: 78 Year
  Sex: Female

DRUGS (9)
  1. DEPAKENE [Suspect]
     Indication: EPILEPSY
     Dosage: 500 MG, 2 IN 1 D, PER ORAL
     Route: 048
     Dates: start: 20030315, end: 20040130
  2. DONEPEZIL HYDROCHLORIDE [Concomitant]
  3. CITALOPRAM HYDROBROMIDE [Concomitant]
  4. VERAPAMIL [Concomitant]
  5. LEVOTHYROXINE SODIUM [Concomitant]
  6. GUANABENZ ACETATE [Concomitant]
  7. LIPIREX [Concomitant]
  8. TRANDOLAPRIL [Concomitant]
  9. ALENDRONATE SODIUM [Concomitant]

REACTIONS (6)
  - ABNORMAL BEHAVIOUR [None]
  - COGNITIVE DETERIORATION [None]
  - DISTURBANCE IN SOCIAL BEHAVIOUR [None]
  - FALL [None]
  - IMPAIRED SELF-CARE [None]
  - MEMORY IMPAIRMENT [None]
